FAERS Safety Report 12589462 (Version 1)
Quarter: 2016Q3

REPORT INFORMATION
  Report Type: Spontaneous
  Country: IT (occurrence: IT)
  Receive Date: 20160725
  Receipt Date: 20160725
  Transmission Date: 20161109
  Serious: Yes (Other)
  Sender: FDA-Public Use
  Company Number: IT-FRI-1000086270

PATIENT
  Age: 52 Year
  Sex: Female

DRUGS (2)
  1. UROTRACTIN [Suspect]
     Active Substance: PIPEMIDIC ACID
     Indication: URINARY TRACT INFECTION
     Dosage: 1 DF, TOTAL
     Route: 048
     Dates: start: 20160404, end: 20160404
  2. MONUROL [Suspect]
     Active Substance: FOSFOMYCIN TROMETHAMINE
     Indication: URINARY TRACT INFECTION
     Dosage: 1 DF, TOTAL
     Route: 048
     Dates: start: 20160404, end: 20160404

REACTIONS (2)
  - Hypersensitivity [Recovering/Resolving]
  - Urticaria [Recovering/Resolving]

NARRATIVE: CASE EVENT DATE: 20160404
